FAERS Safety Report 7683141-5 (Version None)
Quarter: 2011Q3

REPORT INFORMATION
  Report Type: 
  Country: None (occurrence: None)
  Receive Date: 20110815
  Receipt Date: 20110808
  Transmission Date: 20111222
  Serious: Yes (Hospitalization, Other)
  Sender: FDA-Public Use
  Company Number: US-CEPHALON-US024480

PATIENT
  Sex: Male

DRUGS (4)
  1. PROVIGIL [Suspect]
     Route: 065
  2. KLONOPIN [Concomitant]
     Route: 065
  3. AVINZA [Concomitant]
     Route: 065
  4. PERCOCET [Concomitant]
     Dosage: 7.5 MG EVERY EIGHT HOURS AS NEEDED
     Route: 048

REACTIONS (2)
  - NEUROLEPTIC MALIGNANT SYNDROME [None]
  - HALLUCINATION [None]
